FAERS Safety Report 8024365-7 (Version None)
Quarter: 2012Q1

REPORT INFORMATION
  Report Type: 
  Country: None (occurrence: None)
  Receive Date: 20120105
  Receipt Date: 20120104
  Transmission Date: 20120608
  Serious: Yes (Death)
  Sender: FDA-Public Use
  Company Number: PHHY2012EG000736

PATIENT
  Age: 72 Year
  Sex: Male

DRUGS (1)
  1. VALSARTAN  AND HYDROCHLOROTHIAZIDE [Suspect]
     Indication: HYPERTENSION
     Dosage: 1 DF, PER DAY
     Route: 048
     Dates: start: 20081112

REACTIONS (2)
  - MYOCARDIAL INFARCTION [None]
  - BLOOD PRESSURE SYSTOLIC INCREASED [None]
